FAERS Safety Report 4869053-0 (Version None)
Quarter: 2005Q4

REPORT INFORMATION
  Report Type: 
  Country: None (occurrence: None)
  Receive Date: 20051219
  Receipt Date: 20051130
  Transmission Date: 20060501
  Serious: Yes (Other)
  Sender: FDA-Public Use
  Company Number: 200510578BYL

PATIENT
  Age: 23 Month
  Sex: Male
  Weight: 10.6 kg

DRUGS (2)
  1. GAMIMUNE N 5% [Suspect]
     Indication: KAWASAKI'S DISEASE
     Dosage: 20 G, TOTAL DAILY, INTRAVENOUS
     Route: 042
     Dates: start: 20051019, end: 20051020
  2. FROBEN [Concomitant]

REACTIONS (3)
  - INFUSION SITE EXTRAVASATION [None]
  - INJECTION SITE SWELLING [None]
  - SKIN NECROSIS [None]
